FAERS Safety Report 8029044 (Version 2)
Quarter: 2012Q4

REPORT INFORMATION
  Report Type: 
  Country: IT (occurrence: IT)
  Receive Date: 20110711
  Receipt Date: 20120905
  Transmission Date: 20130627
  Serious: Yes (Other)
  Sender: FDA-Public Use
  Company Number: IT-GLAXOSMITHKLINE-B0731784A

PATIENT
  Age: 65 Year
  Sex: Female

DRUGS (2)
  1. TYVERB [Suspect]
     Indication: BREAST CANCER
     Route: 065
     Dates: start: 20110601, end: 20110706
  2. CAPECITABINE [Concomitant]
     Route: 048
     Dates: start: 20110601, end: 20110614

REACTIONS (1)
  - Dermatitis bullous [Recovered/Resolved]
